FAERS Safety Report 25600397 (Version 2)
Quarter: 2025Q3

REPORT INFORMATION
  Report Type: Report from Study
  Country: EU (occurrence: EU)
  Receive Date: 20250724
  Receipt Date: 20250903
  Transmission Date: 20251021
  Serious: Yes (Life-Threatening, Hospitalization, Other)
  Sender: BIOTEST
  Company Number: EU-BIOTEST-015812

PATIENT
  Age: 74 Year
  Sex: Female

DRUGS (2)
  1. YIMMUGO [Suspect]
     Active Substance: HUMAN IMMUNOGLOBULIN G-DIRA
     Indication: Secondary immunodeficiency
     Dates: start: 20241115, end: 20250110
  2. OBINUTUZUMAB [Concomitant]
     Active Substance: OBINUTUZUMAB

REACTIONS (4)
  - Aortic valve stenosis [Recovering/Resolving]
  - Norovirus infection [Recovering/Resolving]
  - Urosepsis [Recovering/Resolving]
  - Acute kidney injury [Recovering/Resolving]

NARRATIVE: CASE EVENT DATE: 20250114
